FAERS Safety Report 21592973 (Version 1)
Quarter: 2022Q4

REPORT INFORMATION
  Report Type: Spontaneous
  Country: US (occurrence: US)
  Receive Date: 20221114
  Receipt Date: 20221114
  Transmission Date: 20230112
  Serious: No
  Sender: FDA-Public Use
  Company Number: US-THE RITEDOSE CORPORATION-2022RIT000213

PATIENT

DRUGS (4)
  1. IPRATROPIUM BROMIDE AND ALBUTEROL SULFATE [Suspect]
     Active Substance: ALBUTEROL SULFATE\IPRATROPIUM BROMIDE
     Indication: Chronic obstructive pulmonary disease
     Dosage: UNK
     Route: 055
     Dates: start: 202206
  2. BUDESONIDE [Suspect]
     Active Substance: BUDESONIDE
     Indication: Product used for unknown indication
  3. LISINOPRIL [Suspect]
     Active Substance: LISINOPRIL
     Indication: Product used for unknown indication
  4. HYDROCORTISONE [Suspect]
     Active Substance: HYDROCORTISONE
     Indication: Product used for unknown indication

REACTIONS (15)
  - Pruritus [Unknown]
  - Dysphonia [Unknown]
  - Arthralgia [Unknown]
  - Arthralgia [Unknown]
  - Decreased appetite [Unknown]
  - Pain of skin [Unknown]
  - Skin texture abnormal [Unknown]
  - Rash [Unknown]
  - Peripheral swelling [Unknown]
  - Peripheral swelling [Unknown]
  - Skin exfoliation [Unknown]
  - Blood pressure systolic decreased [Unknown]
  - Weight decreased [Unknown]
  - Decreased appetite [Unknown]
  - Abdominal pain upper [Unknown]
